FAERS Safety Report 10638228 (Version 1)
Quarter: 2014Q4

REPORT INFORMATION
  Report Type: Spontaneous
  Country: US (occurrence: None)
  Receive Date: 20141121
  Receipt Date: 20141121
  Transmission Date: 20150529
  Serious: No
  Sender: FDA-Public Use
  Company Number: 163-10004-14080622

PATIENT
  Age: 58 Year
  Sex: Female
  Weight: 120.2 kg

DRUGS (3)
  1. ALEVE (NAPROXEN) [Concomitant]
  2. AMOXICILLIN (AMOXICILLIN) [Concomitant]
     Active Substance: AMOXICILLIN
  3. OTEZLA [Suspect]
     Active Substance: APREMILAST
     Indication: PSORIASIS
     Route: 048
     Dates: start: 201405, end: 201407

REACTIONS (4)
  - Gynaecological examination abnormal [None]
  - Decreased appetite [None]
  - Muscle spasms [None]
  - Diarrhoea [None]

NARRATIVE: CASE EVENT DATE: 201406
